FAERS Safety Report 8512829-9 (Version None)
Quarter: 2012Q3

REPORT INFORMATION
  Report Type: 
  Country: None (occurrence: None)
  Receive Date: 20120716
  Receipt Date: 20120706
  Transmission Date: 20120928
  Serious: Yes (Hospitalization)
  Sender: FDA-Public Use
  Company Number: US-PFIZER INC-2012005132

PATIENT
  Sex: Female
  Weight: 96.8 kg

DRUGS (21)
  1. AXITINIB [Suspect]
     Indication: HEPATIC CANCER METASTATIC
     Dosage: 5 MG, 2X/DAY
     Route: 048
     Dates: start: 20111117, end: 20120102
  2. LANTUS [Concomitant]
     Indication: DIABETES MELLITUS
     Dosage: 35U, HS
     Dates: start: 20090101
  3. TOPROL-XL [Concomitant]
     Indication: HYPERTENSION
     Dosage: 25 MG, 1X/DAY
     Dates: start: 20110101
  4. ASPIRIN [Concomitant]
     Indication: CARDIOVASCULAR EVENT PROPHYLAXIS
  5. GLUCOVANCE [Concomitant]
     Indication: DIABETES MELLITUS
     Dosage: 5/500, 2X/DAY
     Dates: start: 19930101
  6. POTASSIUM CHLORIDE [Concomitant]
     Indication: SUPPLEMENTATION THERAPY
  7. LISINOPRIL [Concomitant]
     Indication: HYPERTENSION
     Dosage: 20 MG, 1X/DAY
     Dates: start: 20090101, end: 20111214
  8. DIOVAN [Concomitant]
     Indication: HYPERTENSION
     Dosage: 160 MG, 1X/DAY
     Dates: start: 19900101, end: 20111214
  9. MAALOX PLUS [Concomitant]
     Indication: NAUSEA
     Dosage: PRN
     Dates: start: 20110101
  10. CLONIDINE [Concomitant]
     Indication: HYPERTENSION
     Dosage: 0.1 MG, 3X/DAY
     Dates: end: 20111201
  11. LIPITOR [Concomitant]
     Indication: DYSLIPIDAEMIA
     Dosage: 40 MG, 1X/DAY
     Dates: start: 19960101
  12. TRICOR [Concomitant]
     Indication: DYSLIPIDAEMIA
     Dosage: 48 MG, 1X/DAY
     Dates: start: 19960101
  13. POTASSIUM CHLORIDE [Concomitant]
     Indication: ELECTROLYTE SUBSTITUTION THERAPY
     Dosage: 20 MEQ, 1X/DAY
     Dates: start: 19960101
  14. LASIX [Concomitant]
     Indication: HYPERTENSION
     Dosage: 20 MG, 2X/DAY
     Dates: start: 19960101
  15. BYETTA [Concomitant]
     Indication: DIABETES MELLITUS
     Dosage: 10 MG, 1X/DAY
     Dates: start: 20080101
  16. LISINOPRIL [Concomitant]
     Dosage: 40 MG, UNK
     Dates: start: 20111215
  17. VITAMIN D [Concomitant]
     Indication: VITAMIN SUPPLEMENTATION
     Dosage: 1000U, 1X/DAY
     Dates: start: 20110101
  18. ASPIRIN [Concomitant]
     Indication: PROPHYLAXIS
     Dosage: 81 MG, 1X/DAY
     Dates: start: 20080101
  19. METOPROLOL [Concomitant]
     Indication: HYPERTENSION
     Dosage: 50 MG, UNK
     Dates: start: 20111215
  20. SYNTHROID [Concomitant]
     Indication: HYPOTHYROIDISM
     Dosage: 0.125 MG, 1X/DAY
     Dates: start: 19960101
  21. DIOVAN [Concomitant]
     Dosage: 320 MG, UNK
     Dates: start: 20111215

REACTIONS (1)
  - URINARY TRACT INFECTION [None]
